FAERS Safety Report 5778607-9 (Version None)
Quarter: 2008Q2

REPORT INFORMATION
  Report Type: 
  Country: None (occurrence: None)
  Receive Date: 20080617
  Receipt Date: 20080605
  Transmission Date: 20081010
  Serious: Yes (Death)
  Sender: FDA-Public Use
  Company Number: 2008AL006503

PATIENT
  Age: 83 Year
  Sex: Male

DRUGS (1)
  1. DIGOXIN [Suspect]
     Indication: ARRHYTHMIA
     Dosage: PO
     Route: 048

REACTIONS (1)
  - DEATH [None]
